FAERS Safety Report 7672778-5 (Version None)
Quarter: 2011Q3

REPORT INFORMATION
  Report Type: 
  Country: None (occurrence: None)
  Receive Date: 20110804
  Receipt Date: 20110727
  Transmission Date: 20111222
  Serious: Yes (Hospitalization)
  Sender: FDA-Public Use
  Company Number: 018700

PATIENT
  Age: 80 Year
  Sex: Male

DRUGS (1)
  1. MACUGEN [Suspect]
     Indication: MACULAR DEGENERATION
     Dosage: 0.3 MG, OPHTHALMIC
     Route: 047
     Dates: start: 20100205, end: 20100205

REACTIONS (4)
  - ATRIOVENTRICULAR BLOCK [None]
  - CHEST PAIN [None]
  - PYREXIA [None]
  - BRADYCARDIA [None]
